FAERS Safety Report 25000159 (Version 3)
Quarter: 2025Q2

REPORT INFORMATION
  Report Type: Spontaneous
  Country: US (occurrence: US)
  Receive Date: 20250222
  Receipt Date: 20250513
  Transmission Date: 20250716
  Serious: No
  Sender: SANOFI AVENTIS
  Company Number: US-SA-2025SA051715

PATIENT
  Age: 24 Year
  Sex: Male

DRUGS (1)
  1. DUPIXENT [Suspect]
     Active Substance: DUPILUMAB
     Indication: Dermatitis atopic
     Dosage: 300 MG, QOW
     Route: 058
     Dates: start: 20250218

REACTIONS (7)
  - Sleep disorder due to a general medical condition [Unknown]
  - Skin irritation [Unknown]
  - Rash pruritic [Unknown]
  - Eye pruritus [Unknown]
  - Rash [Unknown]
  - Dry eye [Recovering/Resolving]
  - Adverse drug reaction [Unknown]
